FAERS Safety Report 8134138-2 (Version None)
Quarter: 2012Q1

REPORT INFORMATION
  Report Type: 
  Country: None (occurrence: None)
  Receive Date: 20120208
  Receipt Date: 20120124
  Transmission Date: 20120608
  Serious: Yes (Other)
  Sender: FDA-Public Use
  Company Number: 2012HGS-003219

PATIENT
  Sex: Female
  Weight: 80 kg

DRUGS (3)
  1. ANTI-MALARIAL DRUG [Concomitant]
  2. BENLYSTA [Suspect]
     Dosage: INTRAVENOUS (NOT OTHERWISE SPECIFIED)
     Route: 042
  3. KORTISON (CORTISONE ACETATE) (CORTISONE ACETATE) [Concomitant]

REACTIONS (1)
  - DIARRHOEA HAEMORRHAGIC [None]
